FAERS Safety Report 19685630 (Version 1)
Quarter: 2021Q3

REPORT INFORMATION
  Report Type: Spontaneous
  Country: GB (occurrence: GB)
  Receive Date: 20210811
  Receipt Date: 20210811
  Transmission Date: 20211014
  Serious: Yes (Hospitalization)
  Sender: FDA-Public Use
  Company Number: GB-SUN PHARMACEUTICAL INDUSTRIES LTD-2021RR-307467

PATIENT
  Age: 67 Year
  Sex: Female

DRUGS (2)
  1. GEMCITABINE. [Suspect]
     Active Substance: GEMCITABINE
     Indication: OVARIAN CANCER
     Dosage: 1000 MICROGRAM/SQ. METER, UNK
     Route: 065
     Dates: start: 20151001
  2. MASITINIB [Suspect]
     Active Substance: MASITINIB
     Indication: OVARIAN CANCER
     Dosage: 300 MILLIGRAM, DAILY
     Route: 048
     Dates: start: 20151001

REACTIONS (1)
  - Atrial fibrillation [Recovered/Resolved]

NARRATIVE: CASE EVENT DATE: 20151117
